FAERS Safety Report 5275254-2 (Version None)
Quarter: 2007Q1

REPORT INFORMATION
  Report Type: 
  Country: None (occurrence: None)
  Receive Date: 20070322
  Receipt Date: 20070322
  Transmission Date: 20070707
  Serious: No
  Sender: FDA-Public Use
  Company Number: None

PATIENT
  Sex: Male
  Weight: 77.5 kg

DRUGS (7)
  1. VELCADE [Suspect]
     Indication: MANTLE CELL LYMPHOMA
     Dosage: 1.6 MG/M2 WEEKLY (4 WEEKS ON, 1 WEEK OFF) VIA PERIPHERAL IV LINE
     Route: 042
  2. RITUXAN [Concomitant]
  3. FLOMAX [Concomitant]
  4. LANSOPRAZOLE [Concomitant]
  5. TOPROL-XL [Concomitant]
  6. KCI [Concomitant]
  7. CURCUMIN [Concomitant]

REACTIONS (2)
  - INJECTION SITE DISCOLOURATION [None]
  - VEIN DISORDER [None]
